FAERS Safety Report 15112798 (Version 2)
Quarter: 2018Q4

REPORT INFORMATION
  Report Type: Spontaneous
  Country: US (occurrence: US)
  Receive Date: 20180705
  Receipt Date: 20181102
  Transmission Date: 20190204
  Serious: No
  Sender: FDA-Public Use
  Company Number: US-BIOGEN-2017BI00474776

PATIENT
  Age: 33 Year
  Sex: Female

DRUGS (2)
  1. TECFIDERA [Suspect]
     Active Substance: DIMETHYL FUMARATE
     Dosage: MAINTENANCE DOSE
     Route: 048
     Dates: start: 20171006, end: 20180119
  2. TECFIDERA [Suspect]
     Active Substance: DIMETHYL FUMARATE
     Indication: MULTIPLE SCLEROSIS
     Dosage: STARTING DOSE
     Route: 048
     Dates: start: 20170929, end: 20171006

REACTIONS (11)
  - Visual impairment [Recovered/Resolved]
  - Feeling abnormal [Unknown]
  - Dysarthria [Recovered/Resolved]
  - Ear infection [Unknown]
  - Fatigue [Unknown]
  - Dizziness [Unknown]
  - Product dose omission [Recovered/Resolved]
  - Xanthopsia [Unknown]
  - Prescribed underdose [Not Recovered/Not Resolved]
  - Attention deficit/hyperactivity disorder [Recovered/Resolved]
  - Tremor [Recovered/Resolved]

NARRATIVE: CASE EVENT DATE: 20170929
